FAERS Safety Report 8525746-5 (Version None)
Quarter: 2012Q3

REPORT INFORMATION
  Report Type: 
  Country: None (occurrence: None)
  Receive Date: 20120720
  Receipt Date: 20120330
  Transmission Date: 20120928
  Serious: Yes (Death, Hospitalization, Disabling, Other)
  Sender: FDA-Public Use
  Company Number: US-009507513-1201USA03450

PATIENT

DRUGS (10)
  1. OS-CAL PLUS [Concomitant]
     Dosage: 500 MG, QD
  2. SYNTHROID [Concomitant]
     Dosage: 50 A?G, QD
  3. COLACE [Concomitant]
     Dosage: 100 MG, QD
  4. MK-9278 [Concomitant]
  5. FOSAMAX [Suspect]
     Indication: OSTEOPOROSIS
     Route: 048
     Dates: start: 19960101, end: 20100101
  6. ASPIRIN [Concomitant]
     Dosage: 325 MG, QD
  7. FOSAMAX [Suspect]
     Indication: OSTEOPENIA
  8. PROTONIX [Concomitant]
     Dosage: 40 MG, QD
  9. ARMOUR THYROID TABLETS [Concomitant]
  10. MIACALCIN [Concomitant]
     Dosage: UNK UNK, QD
     Route: 055

REACTIONS (35)
  - FEMUR FRACTURE [None]
  - HYPOTHYROIDISM [None]
  - NEUROPATHY PERIPHERAL [None]
  - HIP FRACTURE [None]
  - HYPERGLYCAEMIA [None]
  - HAEMORRHAGIC ANAEMIA [None]
  - CARDIAC MURMUR [None]
  - ABDOMINAL PAIN [None]
  - ESSENTIAL HYPERTENSION [None]
  - TENDERNESS [None]
  - CAROTID BRUIT [None]
  - AMNESIA [None]
  - CONVULSION [None]
  - BRADYCARDIA [None]
  - FAILURE TO THRIVE [None]
  - SYNCOPE [None]
  - PULMONARY OEDEMA [None]
  - APPENDIX DISORDER [None]
  - ARTERIOSCLEROSIS CORONARY ARTERY [None]
  - RALES [None]
  - SPINAL COMPRESSION FRACTURE [None]
  - CARDIAC FAILURE [None]
  - NON-CARDIAC CHEST PAIN [None]
  - EOSINOPHILIA [None]
  - PUPILLARY LIGHT REFLEX TESTS ABNORMAL [None]
  - PUPILS UNEQUAL [None]
  - DIVERTICULITIS [None]
  - FALL [None]
  - EYE DISORDER [None]
  - GLUCOSE TOLERANCE IMPAIRED [None]
  - SENILE DEMENTIA [None]
  - CHRONIC OBSTRUCTIVE PULMONARY DISEASE [None]
  - ATRIOVENTRICULAR BLOCK FIRST DEGREE [None]
  - HEPATIC CYST [None]
  - URINARY TRACT INFECTION [None]
